FAERS Safety Report 7925538-1 (Version None)
Quarter: 2011Q4

REPORT INFORMATION
  Report Type: 
  Country: None (occurrence: None)
  Receive Date: 20111118
  Receipt Date: 20110406
  Transmission Date: 20120403
  Serious: No
  Sender: FDA-Public Use
  Company Number: US-AMGEN-USASP2011018228

PATIENT
  Age: 61 Year
  Sex: Female

DRUGS (2)
  1. ENBREL [Suspect]
     Indication: PSORIASIS
  2. ENBREL [Suspect]
     Indication: PSORIATIC ARTHROPATHY
     Dosage: 50 MG, 2 TIMES/WK
     Dates: start: 20030301

REACTIONS (12)
  - PSORIATIC ARTHROPATHY [None]
  - PSORIASIS [None]
  - MUSCULAR WEAKNESS [None]
  - FATIGUE [None]
  - DECREASED APPETITE [None]
  - THERAPEUTIC RESPONSE DECREASED [None]
  - INJECTION SITE PRURITUS [None]
  - ANXIETY [None]
  - TYPE 2 DIABETES MELLITUS [None]
  - DEPRESSION [None]
  - WEIGHT INCREASED [None]
  - FIBROMYALGIA [None]
